FAERS Safety Report 12699793 (Version 2)
Quarter: 2016Q4

REPORT INFORMATION
  Report Type: Report from Study
  Country: CA (occurrence: CA)
  Receive Date: 20160830
  Receipt Date: 20161004
  Transmission Date: 20170207
  Serious: Yes (Other)
  Sender: FDA-Public Use
  Company Number: CA-JNJFOC-20160822522

PATIENT
  Age: 27 Year
  Sex: Female

DRUGS (2)
  1. REMICADE [Suspect]
     Active Substance: INFLIXIMAB
     Indication: CROHN^S DISEASE
     Route: 042
     Dates: start: 20150219
  2. REMICADE [Suspect]
     Active Substance: INFLIXIMAB
     Indication: CROHN^S DISEASE
     Dosage: 14TH INFUSION
     Route: 042
     Dates: start: 20160920

REACTIONS (4)
  - Intestinal resection [Unknown]
  - Off label use [Unknown]
  - Frequent bowel movements [Unknown]
  - Product use issue [Unknown]

NARRATIVE: CASE EVENT DATE: 20150219
